FAERS Safety Report 20680803 (Version 2)
Quarter: 2022Q3

REPORT INFORMATION
  Report Type: Report from Study
  Country: US (occurrence: US)
  Receive Date: 20220406
  Receipt Date: 20220804
  Transmission Date: 20221027
  Serious: Yes (Death)
  Sender: FDA-Public Use
  Company Number: US-Taiho Oncology Inc-EU-2022-00883

PATIENT
  Age: 59 Year
  Sex: Female

DRUGS (1)
  1. LONSURF [Suspect]
     Active Substance: TIPIRACIL HYDROCHLORIDE\TRIFLURIDINE
     Indication: Colon cancer
     Dosage: CYCLE AND FREQUENCY UNKNOWN
     Route: 048
     Dates: start: 202107

REACTIONS (2)
  - Disease progression [Fatal]
  - Inappropriate schedule of product administration [Unknown]

NARRATIVE: CASE EVENT DATE: 20220314
